FAERS Safety Report 12175421 (Version 2)
Quarter: 2016Q2

REPORT INFORMATION
  Report Type: Spontaneous
  Country: DK (occurrence: GB)
  Receive Date: 20160314
  Receipt Date: 20160413
  Transmission Date: 20160815
  Serious: Yes (Death, Other)
  Sender: FDA-Public Use
  Company Number: GB-FRI-1000083206

PATIENT
  Age: 35 Year
  Sex: Male
  Weight: 127 kg

DRUGS (2)
  1. HEROIN [Suspect]
     Active Substance: DIACETYLMORPHINE
     Indication: DRUG ABUSE
     Route: 065
  2. CITALOPRAM [Suspect]
     Active Substance: CITALOPRAM HYDROBROMIDE
     Indication: ANXIETY
     Dosage: 60 MG ONCE DAILY (PRESCRIBED OVERDOSE)
     Route: 048
     Dates: start: 20151001

REACTIONS (4)
  - Arrhythmia [Not Recovered/Not Resolved]
  - Toxicity to various agents [Not Recovered/Not Resolved]
  - Sleep apnoea syndrome [Fatal]
  - Prescribed overdose [Not Recovered/Not Resolved]
